FAERS Safety Report 22125054 (Version 1)
Quarter: 2023Q1

REPORT INFORMATION
  Report Type: Spontaneous
  Country: US (occurrence: None)
  Receive Date: 20230321
  Receipt Date: 20230321
  Transmission Date: 20230418
  Serious: Yes (Death)
  Sender: FDA-Public Use
  Company Number: None

PATIENT
  Age: 89 Year
  Sex: Female
  Weight: 65.86 kg

DRUGS (14)
  1. IBRANCE [Suspect]
     Active Substance: PALBOCICLIB
     Indication: Breast cancer female
     Dosage: FREQUENCY : DAILY;?
     Route: 048
  2. AMLODIPINE [Concomitant]
     Active Substance: AMLODIPINE BESYLATE
  3. BENZONATATE [Concomitant]
     Active Substance: BENZONATATE
  4. COLACE [Concomitant]
     Active Substance: DOCUSATE SODIUM
  5. ELIQUIS [Concomitant]
     Active Substance: APIXABAN
  6. FASLODEX [Concomitant]
     Active Substance: FULVESTRANT
  7. HYDROCHLOROTHIAZIDE [Concomitant]
     Active Substance: HYDROCHLOROTHIAZIDE
  8. MELATONIN [Concomitant]
     Active Substance: MELATONIN
  9. MEMANTINE [Concomitant]
     Active Substance: MEMANTINE
  10. POTASSIUM CHLORIDE [Concomitant]
     Active Substance: POTASSIUM CHLORIDE
  11. SENNA [Concomitant]
     Active Substance: SENNA LEAF\SENNOSIDES\SENNOSIDES A AND B
  12. SYNTHROID [Concomitant]
     Active Substance: LEVOTHYROXINE SODIUM
  13. TAMSULOSIN [Concomitant]
  14. TRAMADOL [Concomitant]
     Active Substance: TRAMADOL

REACTIONS (1)
  - Death [None]
